FAERS Safety Report 15958584 (Version 1)
Quarter: 2019Q1

REPORT INFORMATION
  Report Type: Spontaneous
  Country: US (occurrence: US)
  Receive Date: 20190213
  Receipt Date: 20190213
  Transmission Date: 20190417
  Serious: No
  Sender: FDA-Public Use
  Company Number: US-PURDUE-USA-2018-0145365

PATIENT
  Sex: Male

DRUGS (2)
  1. BUTRANS [Suspect]
     Active Substance: BUPRENORPHINE
     Indication: BACK PAIN
     Dosage: 20 MCG/HR, WEEKLY
     Route: 062
     Dates: start: 201709
  2. BUTRANS [Suspect]
     Active Substance: BUPRENORPHINE
     Indication: SCIATICA

REACTIONS (5)
  - Application site dryness [Unknown]
  - Inappropriate schedule of product administration [Unknown]
  - Application site irritation [Unknown]
  - Application site rash [Not Recovered/Not Resolved]
  - Product adhesion issue [Unknown]
